FAERS Safety Report 5199758-6 (Version None)
Quarter: 2007Q1

REPORT INFORMATION
  Report Type: 
  Country: None (occurrence: None)
  Receive Date: 20070105
  Receipt Date: 20060309
  Transmission Date: 20070707
  Serious: No
  Sender: FDA-Public Use
  Company Number: US-GLAXOSMITHKLINE-A0596692A

PATIENT
  Sex: Female

DRUGS (1)
  1. TAGAMET HB 200 [Suspect]
     Indication: DRUG USE FOR UNKNOWN INDICATION
     Route: 048
     Dates: start: 20060306

REACTIONS (3)
  - FREQUENT BOWEL MOVEMENTS [None]
  - MALAISE [None]
  - VOMITING [None]
